FAERS Safety Report 7116233-X (Version None)
Quarter: 2010Q4

REPORT INFORMATION
  Report Type: 
  Country: None (occurrence: None)
  Receive Date: 20101122
  Receipt Date: 20101119
  Transmission Date: 20110411
  Serious: Yes (Other)
  Sender: FDA-Public Use
  Company Number: A0885374A

PATIENT
  Age: 61 Year
  Sex: Female

DRUGS (1)
  1. DEBROX [Suspect]
     Route: 001

REACTIONS (2)
  - DEAFNESS [None]
  - EAR DISCOMFORT [None]
